FAERS Safety Report 9183482 (Version 1)
Quarter: 2013Q1

REPORT INFORMATION
  Report Type: Spontaneous
  Country: US (occurrence: US)
  Receive Date: 20130322
  Receipt Date: 20130322
  Transmission Date: 20140127
  Serious: No
  Sender: FDA-Public Use
  Company Number: US-BRISTOL-MYERS SQUIBB COMPANY-16429912

PATIENT
  Age: 53 Year
  Sex: Male

DRUGS (5)
  1. ERBITUX [Suspect]
     Indication: HEAD AND NECK CANCER
     Dosage: NO OF DOSES:7
     Route: 042
     Dates: start: 20111228, end: 20120208
  2. LORTAB [Concomitant]
     Dosage: ELIXIR PM
  3. ONDANSETRON [Concomitant]
     Route: 048
  4. MIRACLE MOUTHWASH [Concomitant]
  5. DIFLUCAN [Concomitant]
     Route: 048

REACTIONS (2)
  - Speech disorder [Recovered/Resolved]
  - Dysphagia [Recovered/Resolved]
